FAERS Safety Report 4267232-7 (Version None)
Quarter: 2004Q1

REPORT INFORMATION
  Report Type: 
  Country: None (occurrence: None)
  Receive Date: 20040108
  Receipt Date: 20040108
  Transmission Date: 20041129
  Serious: Yes (Hospitalization)
  Sender: FDA-Public Use
  Company Number: None

PATIENT
  Sex: Female
  Weight: 95.2554 kg

DRUGS (6)
  1. NAVELBINE [Suspect]
     Indication: BREAST CANCER
     Dosage: 60 MG IV, 50 MG IV
     Route: 042
     Dates: start: 20031126, end: 20031204
  2. NAVELBINE [Suspect]
     Indication: BREAST CANCER
     Dosage: 60 MG IV, 50 MG IV
     Route: 042
     Dates: start: 20031222
  3. LOPRESSOR [Concomitant]
  4. DIOVAN [Concomitant]
  5. NORVASC [Concomitant]
  6. ASPIRIN [Concomitant]

REACTIONS (4)
  - BODY TEMPERATURE INCREASED [None]
  - NEUTROPENIA [None]
  - NEUTROPHIL COUNT DECREASED [None]
  - PYREXIA [None]
